FAERS Safety Report 9306316 (Version 2)
Quarter: 2013Q2

REPORT INFORMATION
  Report Type: Spontaneous
  Country: US (occurrence: US)
  Receive Date: 20130523
  Receipt Date: 20130613
  Transmission Date: 20140414
  Serious: Yes (Other)
  Sender: FDA-Public Use
  Company Number: US-COVIDIEN/TYCO HEALTHCARE/MALLINCKRODT-T201302339

PATIENT
  Sex: Male
  Weight: 120.64 kg

DRUGS (3)
  1. EXALGO EXTENDED RELEASE [Suspect]
     Indication: PRODUCT USED FOR UNKNOWN INDICATION
     Dosage: 32 MG, QD
     Route: 065
     Dates: start: 20130429, end: 20130515
  2. OXYCODONE [Concomitant]
     Indication: PAIN
     Dosage: 30 MG, TID
  3. ZANAFLEX [Concomitant]
     Indication: MUSCLE SPASMS
     Dosage: 1/2 - 1, BID

REACTIONS (2)
  - Nightmare [Recovered/Resolved]
  - Somnambulism [Recovered/Resolved]
